FAERS Safety Report 17851846 (Version 2)
Quarter: 2020Q2

REPORT INFORMATION
  Report Type: Spontaneous
  Country: GB (occurrence: GB)
  Receive Date: 20200602
  Receipt Date: 20200616
  Transmission Date: 20200714
  Serious: Yes (Death, Life-Threatening, Other)
  Sender: FDA-Public Use
  Company Number: GB-BRISTOL-MYERS SQUIBB COMPANY-BMS-2020-040998

PATIENT
  Age: 89 Year
  Sex: Female
  Weight: 61 kg

DRUGS (6)
  1. SPIRONOLACTONE. [Concomitant]
     Active Substance: SPIRONOLACTONE
     Indication: PRODUCT USED FOR UNKNOWN INDICATION
     Route: 065
  2. WARFARIN SODIUM. [Suspect]
     Active Substance: WARFARIN SODIUM
     Indication: ATRIAL FIBRILLATION
     Dosage: WARFARIN 4MG SUNDAY, 3MG EVERY OTHER DAY
     Route: 048
     Dates: start: 20120307, end: 20200311
  3. COLECALCIFEROL [Concomitant]
     Active Substance: CHOLECALCIFEROL
     Indication: VITAMIN SUPPLEMENTATION
     Dosage: 800 UNIT, ONCE EACH MORNING
     Route: 048
     Dates: start: 20200309, end: 20200322
  4. SODIUM CHLORIDE IV [Concomitant]
     Active Substance: SODIUM CHLORIDE
     Indication: HYPOTENSION
     Dosage: 1000 MILLILITER, OVER 12 HOURS
     Route: 042
  5. PARACETAMOL [Concomitant]
     Active Substance: ACETAMINOPHEN
     Indication: ANALGESIC THERAPY
     Dosage: 4 GRAM, QD
     Route: 048
     Dates: start: 20200309, end: 20200322
  6. BUMETANIDE. [Concomitant]
     Active Substance: BUMETANIDE
     Indication: PRODUCT USED FOR UNKNOWN INDICATION
     Route: 065

REACTIONS (10)
  - Pneumonia [Fatal]
  - Suspected COVID-19 [Unknown]
  - Asthenia [Fatal]
  - International normalised ratio increased [Recovered/Resolved]
  - Right ventricular failure [Fatal]
  - Pyrexia [Unknown]
  - Pulmonary sepsis [Unknown]
  - Loss of consciousness [Unknown]
  - End stage renal disease [Fatal]
  - Respiratory failure [Unknown]

NARRATIVE: CASE EVENT DATE: 20200309
